FAERS Safety Report 23856513 (Version 3)
Quarter: 2024Q3

REPORT INFORMATION
  Report Type: Spontaneous
  Country: US (occurrence: US)
  Receive Date: 20240515
  Receipt Date: 20240821
  Transmission Date: 20241016
  Serious: No
  Sender: NOVARTIS
  Company Number: US-002147023-NVSC2024US102117

PATIENT
  Sex: Female

DRUGS (1)
  1. COSENTYX [Suspect]
     Active Substance: SECUKINUMAB
     Indication: Product used for unknown indication
     Dosage: 300 MG, QW (300 MG/2 ML)
     Route: 065

REACTIONS (4)
  - Arthralgia [Unknown]
  - Device delivery system issue [Unknown]
  - Needle issue [Unknown]
  - Device issue [Unknown]
